FAERS Safety Report 8853928 (Version 1)
Quarter: 2012Q4

REPORT INFORMATION
  Report Type: 
  Country: IE (occurrence: IE)
  Receive Date: 20121022
  Receipt Date: 20121022
  Transmission Date: 20130627
  Serious: Yes (Other)
  Sender: FDA-Public Use
  Company Number: PHHY2012IE093431

PATIENT
  Sex: Male

DRUGS (2)
  1. NEORAL [Suspect]
     Indication: TRANSPLANT
     Dosage: 50 mg, BID
  2. WARFARIN [Concomitant]

REACTIONS (3)
  - International normalised ratio increased [Unknown]
  - Blood creatinine increased [Unknown]
  - Blood urea increased [Unknown]
